FAERS Safety Report 5311197-3 (Version None)
Quarter: 2007Q2

REPORT INFORMATION
  Report Type: 
  Country: None (occurrence: None)
  Receive Date: 20070430
  Receipt Date: 20070416
  Transmission Date: 20071010
  Serious: Yes (Hospitalization)
  Sender: FDA-Public Use
  Company Number: JP-ROCHE-360615

PATIENT
  Age: 12 Year
  Sex: Male
  Weight: 45 kg

DRUGS (2)
  1. TAMIFLU [Suspect]
     Indication: INFLUENZA
     Route: 048
     Dates: start: 20040204, end: 20040205
  2. UNIDENTIFIED [Concomitant]
     Dosage: DRUG REPORTED AS HEAVEN (NON-PYRINE PREPARATION FOR COLD SYNDROME).
     Route: 048
     Dates: start: 20040204, end: 20040205

REACTIONS (1)
  - ABNORMAL BEHAVIOUR [None]
